FAERS Safety Report 16766273 (Version 1)
Quarter: 2019Q4

REPORT INFORMATION
  Report Type: Spontaneous
  Country: US (occurrence: US)
  Receive Date: 20190830
  Receipt Date: 20190830
  Transmission Date: 20200122
  Serious: Yes (Disabling)
  Sender: FDA-Public Use
  Company Number: None

PATIENT
  Age: 44 Year
  Sex: Female
  Weight: 58.5 kg

DRUGS (6)
  1. ALPRAZOLAM. [Concomitant]
     Active Substance: ALPRAZOLAM
  2. ADVIL [Suspect]
     Active Substance: IBUPROFEN
     Indication: PAIN
  3. NORCO [Concomitant]
     Active Substance: ACETAMINOPHEN\HYDROCODONE BITARTRATE
  4. AMITRYPTILINE [Concomitant]
     Active Substance: AMITRIPTYLINE
  5. LIDOCAINE. [Concomitant]
     Active Substance: LIDOCAINE
  6. LORAPEDMIDE [Concomitant]

REACTIONS (6)
  - Bedridden [None]
  - Suicidal ideation [None]
  - Muscle spasms [None]
  - Inadequate analgesia [None]
  - Diarrhoea [None]
  - Vomiting [None]

NARRATIVE: CASE EVENT DATE: 20171231
